FAERS Safety Report 11651304 (Version 1)
Quarter: 2015Q4

REPORT INFORMATION
  Report Type: Spontaneous
  Country: US (occurrence: US)
  Receive Date: 20151022
  Receipt Date: 20151022
  Transmission Date: 20160304
  Serious: No
  Sender: FDA-Public Use
  Company Number: US-ASTRAZENECA-2015SF00146

PATIENT
  Sex: Female
  Weight: 72.6 kg

DRUGS (1)
  1. BYDUREON [Suspect]
     Active Substance: EXENATIDE
     Indication: TYPE 2 DIABETES MELLITUS
     Route: 058

REACTIONS (6)
  - Dizziness [Unknown]
  - Product quality issue [Unknown]
  - Abdominal discomfort [Unknown]
  - Nausea [Unknown]
  - Malaise [Unknown]
  - Nasopharyngitis [Unknown]
